FAERS Safety Report 5399070-6 (Version None)
Quarter: 2007Q3

REPORT INFORMATION
  Report Type: 
  Country: None (occurrence: None)
  Receive Date: 20070725
  Receipt Date: 20070725
  Transmission Date: 20080115
  Serious: Yes (Death)
  Sender: FDA-Public Use
  Company Number: None

PATIENT
  Age: 75 Year
  Sex: Male
  Weight: 76.9 kg

DRUGS (1)
  1. DESMOPRESSIN ACETATE [Suspect]
     Indication: HAEMORRHAGE
     Dosage: 20MCG ONCE IV
     Route: 042
     Dates: start: 20070621, end: 20070621

REACTIONS (5)
  - ANGINA PECTORIS [None]
  - CORONARY ARTERY DISEASE [None]
  - ELECTROCARDIOGRAM ST SEGMENT DEPRESSION [None]
  - HYPOTENSION [None]
  - TROPONIN INCREASED [None]
